FAERS Safety Report 9787471 (Version 3)
Quarter: 2015Q4

REPORT INFORMATION
  Report Type: Spontaneous
  Country: JP (occurrence: JP)
  Receive Date: 20131230
  Receipt Date: 20151111
  Transmission Date: 20160305
  Serious: Yes (Hospitalization)
  Sender: FDA-Public Use
  Company Number: JP-ROCHE-1323543

PATIENT
  Age: 63 Year
  Sex: Female
  Weight: 31 kg

DRUGS (12)
  1. HERCEPTIN [Suspect]
     Active Substance: TRASTUZUMAB
     Indication: BREAST CANCER
     Route: 041
     Dates: start: 20130726, end: 20130726
  2. HERCEPTIN [Suspect]
     Active Substance: TRASTUZUMAB
     Indication: BREAST CANCER
     Dosage: FOUR TIMES
     Route: 041
     Dates: start: 20130816, end: 20131025
  3. LOXONIN [Suspect]
     Active Substance: LOXOPROFEN SODIUM
     Indication: ARTHRALGIA
     Route: 048
     Dates: start: 20131108, end: 20131129
  4. HERCEPTIN [Suspect]
     Active Substance: TRASTUZUMAB
     Indication: BREAST CANCER
     Dosage: DOSAGE IS UNCERTAIN.
     Route: 041
     Dates: start: 20131108, end: 20131129
  5. HERCEPTIN [Suspect]
     Active Substance: TRASTUZUMAB
     Indication: BREAST CANCER
     Route: 041
     Dates: start: 20150320, end: 20150320
  6. HERCEPTIN [Suspect]
     Active Substance: TRASTUZUMAB
     Indication: BREAST CANCER
     Route: 041
     Dates: start: 20150410, end: 20150410
  7. LOXONIN [Suspect]
     Active Substance: LOXOPROFEN SODIUM
     Indication: BREAST CANCER
     Route: 048
     Dates: start: 20131024
  8. FEMARA [Suspect]
     Active Substance: LETROZOLE
     Route: 048
     Dates: end: 201404
  9. HERCEPTIN [Suspect]
     Active Substance: TRASTUZUMAB
     Indication: BREAST CANCER
     Dosage: DOSE INTERVAL: 3-4W?11 TIMES
     Route: 041
     Dates: start: 20140224, end: 20141215
  10. FEMARA [Suspect]
     Active Substance: LETROZOLE
     Indication: BREAST CANCER
     Route: 048
     Dates: start: 20131108, end: 20131129
  11. PACLITAXEL. [Concomitant]
     Active Substance: PACLITAXEL
     Indication: BREAST CANCER
     Dosage: 2 DAYS ADMINISTRATION FOLLOWED BY 1 DAYS RESTC
     Route: 041
     Dates: start: 20130705, end: 2013
  12. PACLITAXEL. [Concomitant]
     Active Substance: PACLITAXEL
     Route: 041
     Dates: start: 20130726, end: 20131025

REACTIONS (2)
  - Acute kidney injury [Recovered/Resolved with Sequelae]
  - Rash [Unknown]

NARRATIVE: CASE EVENT DATE: 20131129
